FAERS Safety Report 11792671 (Version 1)
Quarter: 2015Q4

REPORT INFORMATION
  Report Type: Spontaneous
  Country: US (occurrence: None)
  Receive Date: 20151130
  Receipt Date: 20151130
  Transmission Date: 20160305
  Serious: No
  Sender: FDA-Public Use
  Company Number: None

PATIENT
  Age: 68 Year
  Sex: Female

DRUGS (1)
  1. STIVARGA [Suspect]
     Active Substance: REGORAFENIB
     Indication: RETROPERITONEAL NEOPLASM METASTATIC
     Dosage: 80MG  DAILY FOR 21 DAYS ON THEN 7   PO
     Route: 048
     Dates: start: 20151028

REACTIONS (2)
  - Palmar-plantar erythrodysaesthesia syndrome [None]
  - Abdominal pain [None]
